FAERS Safety Report 4899356-5 (Version None)
Quarter: 2006Q1

REPORT INFORMATION
  Report Type: 
  Country: None (occurrence: None)
  Receive Date: 20060106
  Receipt Date: 20050809
  Transmission Date: 20060701
  Serious: No
  Sender: FDA-Public Use
  Company Number: 200417981BWH

PATIENT
  Sex: Male

DRUGS (4)
  1. LEVITRA [Suspect]
     Indication: ERECTILE DYSFUNCTION
     Dosage: 10 MG, ONCE, ORAL; 10 MG, PRN, ORAL
     Route: 048
     Dates: start: 20040524
  2. LEVITRA [Suspect]
     Indication: ERECTILE DYSFUNCTION
     Dosage: 10 MG, ONCE, ORAL; 10 MG, PRN, ORAL
     Route: 048
     Dates: start: 20040524
  3. VIAGRA [Concomitant]
  4. CIALIS [Concomitant]

REACTIONS (3)
  - FLUSHING [None]
  - HAIR TEXTURE ABNORMAL [None]
  - HEADACHE [None]
